FAERS Safety Report 5173157-5 (Version None)
Quarter: 2006Q4

REPORT INFORMATION
  Report Type: 
  Country: None (occurrence: None)
  Receive Date: 20061207
  Receipt Date: 20061207
  Transmission Date: 20070319
  Serious: Yes (Hospitalization)
  Sender: FDA-Public Use
  Company Number: None

PATIENT
  Age: 53 Year
  Sex: Female
  Weight: 72.1219 kg

DRUGS (7)
  1. DEPAKOTE ER [Suspect]
     Indication: AFFECTIVE DISORDER
     Dosage: 500MG 2 AT BEDTIME IV
     Route: 042
     Dates: start: 20050101, end: 20061206
  2. SEROQUEL [Suspect]
     Indication: SLEEP DISORDER
     Dosage: 50MG 2 AT BEDTIME IV
     Route: 042
     Dates: start: 20050101, end: 20061206
  3. DEPAKOTE ER [Concomitant]
  4. SEROQUEL [Concomitant]
  5. MERPEX [Concomitant]
  6. RESPIDAL [Concomitant]
  7. ZIPREXA [Concomitant]

REACTIONS (1)
  - TARDIVE DYSKINESIA [None]
